FAERS Safety Report 4996558-4 (Version None)
Quarter: 2006Q2

REPORT INFORMATION
  Report Type: 
  Country: None (occurrence: None)
  Receive Date: 20060505
  Receipt Date: 20060425
  Transmission Date: 20061013
  Serious: Yes (Hospitalization)
  Sender: FDA-Public Use
  Company Number: 230833K06USA

PATIENT
  Age: 59 Year
  Sex: Male

DRUGS (7)
  1. REBIF [Suspect]
     Indication: MULTIPLE SCLEROSIS
     Dosage: 44 MCG, 3 IN 1 WEEKS, SUBCUTANEOUS
     Route: 058
     Dates: start: 20020816
  2. ANTIBIOTICS (ANTIBIOTICS) [Concomitant]
  3. PROVIGIL [Concomitant]
  4. AMANTADINE HCL [Concomitant]
  5. METHYLIN (METHYLPHENIDATE HYDROCHLORIDE) [Concomitant]
  6. ASCORBIC ACID [Concomitant]
  7. VITAMIN B (VITAMIN B) [Concomitant]

REACTIONS (6)
  - ARTHROPATHY [None]
  - BLOOD GLUCOSE INCREASED [None]
  - HYPOAESTHESIA [None]
  - PNEUMONIA [None]
  - SLEEP DISORDER [None]
  - THERAPY NON-RESPONDER [None]
